FAERS Safety Report 7000363-7 (Version None)
Quarter: 2010Q3

REPORT INFORMATION
  Report Type: 
  Country: None (occurrence: None)
  Receive Date: 20100920
  Receipt Date: 20100517
  Transmission Date: 20110219
  Serious: Yes (Other)
  Sender: FDA-Public Use
  Company Number: US-ASTRAZENECA-2009SE16482

PATIENT
  Age: 53 Year
  Sex: Female

DRUGS (6)
  1. SEROQUEL [Suspect]
     Route: 048
     Dates: start: 20020419
  2. EFFEXOR XR [Concomitant]
     Dates: start: 20080614
  3. SERZONE [Concomitant]
     Dosage: 100 MG TO 200 MG
     Dates: start: 20010410
  4. NEURONTIN [Concomitant]
     Dosage: 400 MG TO 800 MG
     Dates: start: 20010410
  5. CLOMIPRAMINE [Concomitant]
     Dates: start: 20020419
  6. CELEXA [Concomitant]
     Dates: start: 20020712

REACTIONS (4)
  - DIABETES MELLITUS [None]
  - DIABETIC KETOACIDOSIS [None]
  - HYPERGLYCAEMIA [None]
  - TYPE 2 DIABETES MELLITUS [None]
